FAERS Safety Report 11438462 (Version 1)
Quarter: 2015Q3

REPORT INFORMATION
  Report Type: Spontaneous
  Country: US (occurrence: US)
  Receive Date: 20150901
  Receipt Date: 20150901
  Transmission Date: 20151125
  Serious: No
  Sender: FDA-Public Use
  Company Number: US-ROCHE-1087439

PATIENT
  Sex: Female
  Weight: 70.37 kg

DRUGS (7)
  1. ABILIFY [Concomitant]
     Active Substance: ARIPIPRAZOLE
     Route: 048
  2. INCIVEK [Concomitant]
     Active Substance: TELAPREVIR
     Indication: HEPATITIS C
     Route: 048
     Dates: start: 20120521, end: 20120817
  3. RIBASPHERE [Concomitant]
     Active Substance: RIBAVIRIN
     Indication: HEPATITIS C
     Route: 048
     Dates: start: 20120521, end: 20120817
  4. PEGASYS [Suspect]
     Active Substance: PEGINTERFERON ALFA-2A
     Route: 058
     Dates: start: 20120712, end: 20120817
  5. PEGASYS [Suspect]
     Active Substance: PEGINTERFERON ALFA-2A
     Indication: HEPATITIS C
     Route: 058
     Dates: start: 20120521, end: 20120712
  6. TRAZODONE [Concomitant]
     Active Substance: TRAZODONE HYDROCHLORIDE
     Route: 048
  7. LAMICTAL [Concomitant]
     Active Substance: LAMOTRIGINE
     Route: 048

REACTIONS (1)
  - Drug administration error [Unknown]
